FAERS Safety Report 5731049-4 (Version None)
Quarter: 2008Q2

REPORT INFORMATION
  Report Type: 
  Country: None (occurrence: None)
  Receive Date: 20080507
  Receipt Date: 20080502
  Transmission Date: 20081010
  Serious: Yes (Death, Hospitalization, Other)
  Sender: FDA-Public Use
  Company Number: US-MERCK-0804USA00713

PATIENT
  Age: 11 Year
  Sex: Male
  Weight: 132 kg

DRUGS (6)
  1. SINGULAIR [Suspect]
     Indication: ASTHMA
     Route: 048
     Dates: start: 20000403, end: 20001008
  2. SINGULAIR [Suspect]
     Route: 048
     Dates: start: 20001009, end: 20040712
  3. SINGULAIR [Suspect]
     Route: 048
     Dates: start: 20040713
  4. SINGULAIR [Suspect]
     Route: 048
     Dates: start: 19990305, end: 20000402
  5. ALBUTEROL [Concomitant]
     Route: 065
  6. FLOVENT [Concomitant]
     Route: 065

REACTIONS (14)
  - ASTHMA [None]
  - ATTENTION DEFICIT/HYPERACTIVITY DISORDER [None]
  - BACK PAIN [None]
  - CELLULITIS [None]
  - COMPLETED SUICIDE [None]
  - DEPRESSION [None]
  - INSOMNIA [None]
  - LOWER RESPIRATORY TRACT INFECTION [None]
  - OVERDOSE [None]
  - PERIPHERAL VASCULAR DISORDER [None]
  - PHARYNGITIS [None]
  - SUICIDAL BEHAVIOUR [None]
  - UPPER RESPIRATORY TRACT INFECTION [None]
  - WEIGHT INCREASED [None]
